FAERS Safety Report 7197205-6 (Version None)
Quarter: 2010Q4

REPORT INFORMATION
  Report Type: 
  Country: None (occurrence: None)
  Receive Date: 20101224
  Receipt Date: 20101223
  Transmission Date: 20110411
  Serious: Yes (Death, Hospitalization)
  Sender: FDA-Public Use
  Company Number: PHHO2010US17469

PATIENT
  Sex: Female
  Weight: 68.027 kg

DRUGS (10)
  1. CGS 20267 [Suspect]
     Indication: UTERINE LEIOMYOSARCOMA
     Dosage: 2.5 MG, QD
     Route: 048
     Dates: start: 20101028
  2. ATIVAN [Concomitant]
  3. CARAFATE [Concomitant]
  4. COLACE [Concomitant]
  5. EMLA [Concomitant]
  6. DILAUDID [Concomitant]
  7. LACTULOSE [Concomitant]
  8. LEXAPRO [Concomitant]
  9. SENNOSIDE [Concomitant]
  10. ZOFRAN [Concomitant]

REACTIONS (7)
  - ANAEMIA [None]
  - GASTROINTESTINAL HAEMORRHAGE [None]
  - HAEMATOCHEZIA [None]
  - HYPOPHAGIA [None]
  - MALIGNANT NEOPLASM PROGRESSION [None]
  - MELAENA [None]
  - NODULE [None]
